FAERS Safety Report 4534043-4 (Version None)
Quarter: 2004Q4

REPORT INFORMATION
  Report Type: 
  Country: None (occurrence: None)
  Receive Date: 20041222
  Receipt Date: 20041115
  Transmission Date: 20050328
  Serious: Yes (Hospitalization)
  Sender: FDA-Public Use
  Company Number: 200413405EU

PATIENT
  Age: 66 Year
  Sex: Female

DRUGS (5)
  1. DOCETAXEL [Suspect]
     Indication: BREAST CANCER
     Route: 042
     Dates: start: 20041108, end: 20041108
  2. EPIRUBICIN [Suspect]
     Indication: BREAST CANCER
     Route: 042
     Dates: start: 20041108, end: 20041108
  3. HIGROTONA [Concomitant]
     Dosage: DOSE UNIT: CUP
  4. IBUPROFENO [Concomitant]
  5. PRISDAL [Concomitant]
     Dosage: DOSE UNIT: CUP

REACTIONS (5)
  - DIARRHOEA [None]
  - GASTROENTERITIS [None]
  - HYPONATRAEMIA [None]
  - NEUTROPENIA [None]
  - VOMITING [None]
